FAERS Safety Report 19027427 (Version 1)
Quarter: 2021Q1

REPORT INFORMATION
  Report Type: Spontaneous
  Country: US (occurrence: US)
  Receive Date: 20210318
  Receipt Date: 20210318
  Transmission Date: 20210420
  Serious: No
  Sender: FDA-Public Use
  Company Number: US-BLUEPRINT MEDICINES CORPORATION-SP-US-2021-000292

PATIENT
  Sex: Female

DRUGS (1)
  1. GAVRETO [Suspect]
     Active Substance: PRALSETINIB
     Indication: NON-SMALL CELL LUNG CANCER
     Route: 048

REACTIONS (1)
  - Dysphagia [Not Recovered/Not Resolved]
